FAERS Safety Report 5409714-8 (Version None)
Quarter: 2007Q3

REPORT INFORMATION
  Report Type: 
  Country: None (occurrence: None)
  Receive Date: 20070809
  Receipt Date: 20070807
  Transmission Date: 20080115
  Serious: Yes (Other)
  Sender: FDA-Public Use
  Company Number: A0668682A

PATIENT
  Age: 34 Year
  Sex: Female

DRUGS (3)
  1. LAMICTAL [Suspect]
     Indication: BIPOLAR DISORDER
     Dosage: 25MG THREE TIMES PER DAY
     Route: 048
     Dates: start: 20070717, end: 20070806
  2. TOPAMAX [Concomitant]
  3. WELLBUTRIN XL [Concomitant]

REACTIONS (6)
  - AGGRESSION [None]
  - ANGER [None]
  - HOSTILITY [None]
  - IRRITABILITY [None]
  - MANIA [None]
  - OVERDOSE [None]
